FAERS Safety Report 5223939-6 (Version None)
Quarter: 2007Q1

REPORT INFORMATION
  Report Type: 
  Country: None (occurrence: None)
  Receive Date: 20061201
  Receipt Date: 20060923
  Transmission Date: 20070707
  Serious: No
  Sender: FDA-Public Use
  Company Number: 2006PV021807

PATIENT
  Age: 53 Year
  Sex: Female
  Weight: 86.637 kg

DRUGS (10)
  1. BYETTA [Suspect]
     Indication: DIABETES MELLITUS NON-INSULIN-DEPENDENT
     Dosage: SEE IMAGE
     Route: 058
     Dates: start: 20060801, end: 20060901
  2. BYETTA [Suspect]
     Indication: DIABETES MELLITUS NON-INSULIN-DEPENDENT
     Dosage: SEE IMAGE
     Route: 058
     Dates: start: 20060901
  3. BUDEPRION [Concomitant]
  4. METFORMIN HCL [Concomitant]
  5. ASPIRIN [Concomitant]
  6. ALTACE [Concomitant]
  7. TRICOR [Concomitant]
  8. SIMVASTATIN [Concomitant]
  9. PNEUMONIA VACCINE [Concomitant]
  10. TETANUS VACCINE [Concomitant]

REACTIONS (4)
  - CONTUSION [None]
  - INJECTION SITE PAIN [None]
  - VISUAL ACUITY REDUCED [None]
  - WEIGHT DECREASED [None]
